FAERS Safety Report 9380896 (Version 1)
Quarter: 2013Q3

REPORT INFORMATION
  Report Type: Spontaneous
  Country: US (occurrence: US)
  Receive Date: 20130703
  Receipt Date: 20130703
  Transmission Date: 20140515
  Serious: No
  Sender: FDA-Public Use
  Company Number: US-ASTRAZENECA-2013SE41637

PATIENT
  Age: 64 Year
  Sex: Male

DRUGS (1)
  1. BRILINTA [Suspect]
     Route: 048

REACTIONS (4)
  - Fatigue [Unknown]
  - Dry mouth [Unknown]
  - Pain [Unknown]
  - Dizziness [Unknown]
